FAERS Safety Report 4968742-7 (Version None)
Quarter: 2006Q2

REPORT INFORMATION
  Report Type: 
  Country: None (occurrence: None)
  Receive Date: 20060405
  Receipt Date: 20060328
  Transmission Date: 20061013
  Serious: Yes (Hospitalization, Other)
  Sender: FDA-Public Use
  Company Number: 2006AL000823

PATIENT
  Age: 14 Year
  Sex: Female

DRUGS (1)
  1. CARBAMAZEPINE [Suspect]
     Indication: CONVULSION

REACTIONS (11)
  - ABNORMAL BEHAVIOUR [None]
  - ACTIVITIES OF DAILY LIVING IMPAIRED [None]
  - AGGRESSION [None]
  - APATHY [None]
  - CONFUSIONAL STATE [None]
  - DECREASED ACTIVITY [None]
  - DISSOCIATIVE DISORDER [None]
  - DYSKINESIA [None]
  - EDUCATIONAL PROBLEM [None]
  - FEAR [None]
  - STATUS EPILEPTICUS [None]
